FAERS Safety Report 4430142-6 (Version None)
Quarter: 2004Q3

REPORT INFORMATION
  Report Type: 
  Country: None (occurrence: None)
  Receive Date: 20040819
  Receipt Date: 20040819
  Transmission Date: 20050211
  Serious: No
  Sender: FDA-Public Use
  Company Number: None

PATIENT
  Sex: Male
  Weight: 135 kg

DRUGS (6)
  1. AZOPT [Suspect]
     Indication: GLAUCOMA
     Dosage: 1 DROP BID OPHTHALMIC
     Route: 047
     Dates: start: 20040331, end: 20040810
  2. ALPHAGAN P [Concomitant]
  3. XALATAN [Concomitant]
  4. . [Concomitant]
  5. . [Concomitant]
  6. COMBIVENT [Concomitant]

REACTIONS (1)
  - KERATITIS [None]
